FAERS Safety Report 24951877 (Version 1)
Quarter: 2025Q1

REPORT INFORMATION
  Report Type: Spontaneous
  Country: US (occurrence: US)
  Receive Date: 20250210
  Receipt Date: 20250210
  Transmission Date: 20250409
  Serious: Yes (Other)
  Sender: TAKEDA
  Company Number: US-TAKEDA-2025TUS014095

PATIENT
  Age: 59 Year
  Sex: Female

DRUGS (4)
  1. ENTYVIO [Suspect]
     Active Substance: VEDOLIZUMAB
     Indication: Colitis ulcerative
  2. COVID-19 VACCINE NOS [Suspect]
     Active Substance: COVID-19 VACCINE
     Indication: COVID-19 immunisation
  3. PROLIA [Concomitant]
     Active Substance: DENOSUMAB
  4. CALCIUM [Concomitant]
     Active Substance: CALCIUM
     Indication: Mineral supplementation

REACTIONS (22)
  - Colitis ulcerative [Recovering/Resolving]
  - Coeliac disease [Not Recovered/Not Resolved]
  - Infection susceptibility increased [Not Recovered/Not Resolved]
  - Malaise [Unknown]
  - Sleep disorder [Unknown]
  - Myalgia [Recovered/Resolved]
  - Illness [Not Recovered/Not Resolved]
  - Nasopharyngitis [Unknown]
  - Influenza [Not Recovered/Not Resolved]
  - Fatigue [Recovered/Resolved]
  - Nausea [Recovered/Resolved]
  - Alopecia [Unknown]
  - Abdominal discomfort [Unknown]
  - Osteoporosis [Unknown]
  - Tooth loss [Unknown]
  - Malnutrition [Unknown]
  - Osteopenia [Unknown]
  - Arthropathy [Unknown]
  - Stress [Unknown]
  - Gastroenteritis viral [Not Recovered/Not Resolved]
  - Product dose omission issue [Unknown]
  - Hypersensitivity [Unknown]

NARRATIVE: CASE EVENT DATE: 20231102
